FAERS Safety Report 15571491 (Version 1)
Quarter: 2018Q4

REPORT INFORMATION
  Report Type: Spontaneous
  Country: JP (occurrence: JP)
  Receive Date: 20181031
  Receipt Date: 20181031
  Transmission Date: 20190205
  Serious: Yes (Hospitalization)
  Sender: FDA-Public Use
  Company Number: JP-EISAI MEDICAL RESEARCH-EC-2018-046856

PATIENT
  Age: 6 Year
  Sex: Female

DRUGS (3)
  1. INOVELON [Suspect]
     Active Substance: RUFINAMIDE
     Indication: PARTIAL SEIZURES
     Route: 048
     Dates: start: 201702, end: 20170323
  2. INOVELON [Suspect]
     Active Substance: RUFINAMIDE
     Indication: LENNOX-GASTAUT SYNDROME
     Route: 048
     Dates: start: 20170214, end: 201702
  3. INOVELON [Suspect]
     Active Substance: RUFINAMIDE
     Indication: CYTOGENETIC ABNORMALITY
     Route: 048
     Dates: start: 20170324, end: 20170329

REACTIONS (2)
  - Somnolence [Recovered/Resolved]
  - Seizure [Recovered/Resolved]

NARRATIVE: CASE EVENT DATE: 20170217
